FAERS Safety Report 20758458 (Version 1)
Quarter: 2022Q2

REPORT INFORMATION
  Report Type: Report from Study
  Country: US (occurrence: US)
  Receive Date: 20220427
  Receipt Date: 20220427
  Transmission Date: 20220721
  Serious: Yes (Hospitalization, Other)
  Sender: FDA-Public Use
  Company Number: US-BRISTOL-MYERS SQUIBB COMPANY-2022-022311

PATIENT
  Age: 69 Year
  Sex: Male
  Weight: 101 kg

DRUGS (2)
  1. NIVOLUMAB [Suspect]
     Active Substance: NIVOLUMAB
     Indication: Glioblastoma multiforme
     Dosage: TOTAL DOSE ADMINISTERED THIS COURSE: 300 MG
     Route: 065
     Dates: start: 20220217, end: 20220303
  2. IPILIMUMAB [Suspect]
     Active Substance: IPILIMUMAB
     Indication: Glioblastoma multiforme
     Dosage: TOTAL DOSE ADMINISTERED THIS COURSE: 100 MG
     Route: 065
     Dates: start: 20220217, end: 20220217

REACTIONS (2)
  - Hypoxia [Recovering/Resolving]
  - Generalised tonic-clonic seizure [Recovering/Resolving]

NARRATIVE: CASE EVENT DATE: 20220313
